FAERS Safety Report 8493582-4 (Version None)
Quarter: 2012Q3

REPORT INFORMATION
  Report Type: 
  Country: None (occurrence: None)
  Receive Date: 20120706
  Receipt Date: 20120627
  Transmission Date: 20120928
  Serious: No
  Sender: FDA-Public Use
  Company Number: US-US-EMD SERONO, INC.-7011785

PATIENT
  Sex: Female
  Weight: 58 kg

DRUGS (13)
  1. WELLBUTRIN XL [Concomitant]
     Indication: PRODUCT USED FOR UNKNOWN INDICATION
  2. EFFEXOR [Concomitant]
     Indication: PRODUCT USED FOR UNKNOWN INDICATION
  3. REBIF [Suspect]
     Indication: MULTIPLE SCLEROSIS
     Dates: start: 20050101
  4. CELEXA [Concomitant]
     Indication: DEPRESSION
     Route: 065
  5. SINGLULAIR [Concomitant]
     Indication: PRODUCT USED FOR UNKNOWN INDICATION
  6. NEURONTIN [Concomitant]
     Indication: PRODUCT USED FOR UNKNOWN INDICATION
     Dates: start: 19970101
  7. ZOLOFT [Concomitant]
     Route: 048
     Dates: start: 19970101, end: 19970101
  8. NEURONTIN [Concomitant]
     Route: 065
  9. CELEXA [Concomitant]
     Route: 065
  10. FENTANYL-100 [Concomitant]
     Indication: ARTHRALGIA
  11. ZOLOFT [Concomitant]
     Indication: MENOPAUSE
     Route: 048
     Dates: start: 19920101, end: 19920101
  12. ZOLOFT [Concomitant]
     Indication: DEPRESSION
     Route: 048
     Dates: start: 19970101, end: 19970101
  13. CYMBALTA [Concomitant]
     Indication: PRODUCT USED FOR UNKNOWN INDICATION

REACTIONS (10)
  - NECK PAIN [None]
  - PAIN [None]
  - ABDOMINAL DISCOMFORT [None]
  - DIZZINESS [None]
  - DECREASED APPETITE [None]
  - PAIN IN EXTREMITY [None]
  - NAUSEA [None]
  - DEPRESSED MOOD [None]
  - HYPERHIDROSIS [None]
  - MUSCLE SPASMS [None]
